FAERS Safety Report 6262692-4 (Version None)
Quarter: 2009Q3

REPORT INFORMATION
  Report Type: 
  Country: None (occurrence: None)
  Receive Date: 20090708
  Receipt Date: 20090629
  Transmission Date: 20100115
  Serious: Yes (Other)
  Sender: FDA-Public Use
  Company Number: 2009US002607

PATIENT
  Sex: Male
  Weight: 90.2 kg

DRUGS (2)
  1. PROTOPIC [Suspect]
     Indication: ECZEMA
     Dosage: 0.1 %, UID/QD, TOPICAL
     Route: 061
     Dates: start: 20030501, end: 20060101
  2. CLOBETASOL (CLOBETASOL) [Concomitant]

REACTIONS (1)
  - SEMINOMA [None]
